FAERS Safety Report 9472954 (Version 2)
Quarter: 2013Q3

REPORT INFORMATION
  Report Type: Spontaneous
  Country: US (occurrence: US)
  Receive Date: 20130823
  Receipt Date: 20130823
  Transmission Date: 20140515
  Serious: No
  Sender: FDA-Public Use
  Company Number: US-BRISTOL-MYERS SQUIBB COMPANY-17270554

PATIENT
  Age: 58 Year
  Sex: Female
  Weight: 77.1 kg

DRUGS (1)
  1. SPRYCEL [Suspect]
     Indication: CHRONIC MYELOID LEUKAEMIA
     Dosage: PRESCRIPTION#: 410 000000 421 439
     Route: 048
     Dates: start: 201211

REACTIONS (8)
  - Nausea [Recovered/Resolved]
  - Headache [Recovering/Resolving]
  - Cough [Not Recovered/Not Resolved]
  - Fatigue [Recovered/Resolved]
  - Pain [Recovered/Resolved]
  - Bronchitis [Recovered/Resolved]
  - Herpes zoster [Unknown]
  - Weight increased [Unknown]
